FAERS Safety Report 7199669-0 (Version None)
Quarter: 2010Q4

REPORT INFORMATION
  Report Type: 
  Country: None (occurrence: None)
  Receive Date: 20101228
  Receipt Date: 20101215
  Transmission Date: 20110411
  Serious: Yes (Hospitalization)
  Sender: FDA-Public Use
  Company Number: US-ELI_LILLY_AND_COMPANY-US201006002016

PATIENT
  Sex: Female

DRUGS (9)
  1. FORTEO [Suspect]
     Indication: OSTEOPOROSIS
     Dosage: 20 UG, DAILY (1/D)
  2. FORTEO [Suspect]
     Dosage: 20 UG, DAILY (1/D)
  3. COUMADIN [Concomitant]
     Dosage: 2 MG, UNKOWN, TAKE 6 DAYS
     Route: 065
  4. COUMADIN [Concomitant]
     Dosage: 3 MG, UNKNOWN, ONE DAY
     Route: 065
  5. PROTONIX [Concomitant]
  6. METOPROLOL TARTRATE [Concomitant]
     Dosage: 50 MG, 2/D
     Route: 065
  7. ASPIRIN [Concomitant]
     Dosage: 81 MG, UNKNOWN
     Route: 065
  8. DEXLANSOPRAZOLE [Concomitant]
     Dosage: 60 MG, UNKNOWN
     Route: 065
  9. DIGOXIN [Concomitant]
     Dosage: HALF OF A 125 MG, UNKNOWN
     Route: 065

REACTIONS (7)
  - FALL [None]
  - GASTROINTESTINAL SURGERY [None]
  - HEARING IMPAIRED [None]
  - THINKING ABNORMAL [None]
  - UPPER LIMB FRACTURE [None]
  - WEIGHT DECREASED [None]
  - WRIST FRACTURE [None]
